FAERS Safety Report 19473506 (Version 1)
Quarter: 2021Q2

REPORT INFORMATION
  Report Type: Spontaneous
  Country: US (occurrence: US)
  Receive Date: 20210629
  Receipt Date: 20210629
  Transmission Date: 20210717
  Serious: No
  Sender: FDA-Public Use
  Company Number: US-PFIZER INC-2021327554

PATIENT

DRUGS (2)
  1. DETROL LA [Suspect]
     Active Substance: TOLTERODINE TARTRATE
  2. DETROL [Suspect]
     Active Substance: TOLTERODINE TARTRATE

REACTIONS (2)
  - Product dispensing error [Unknown]
  - Cardiac disorder [Unknown]
